FAERS Safety Report 5206883-X (Version None)
Quarter: 2006Q4

REPORT INFORMATION
  Report Type: 
  Country: None (occurrence: None)
  Receive Date: 20061030
  Receipt Date: 20060929
  Transmission Date: 20070319
  Serious: No
  Sender: FDA-Public Use
  Company Number: 257419

PATIENT
  Age: 51 Year
  Sex: Female
  Weight: 81.6 kg

DRUGS (1)
  1. LEVEMIR [Suspect]
     Indication: INSULIN-REQUIRING TYPE II DIABETES MELLITUS
     Dosage: 74 IU, QD, SUBCUTANEOUS
     Route: 058
     Dates: start: 20060901, end: 20060901

REACTIONS (6)
  - BLOOD GLUCOSE INCREASED [None]
  - INJECTION SITE BRUISING [None]
  - INJECTION SITE IRRITATION [None]
  - INJECTION SITE MASS [None]
  - INJECTION SITE PRURITUS [None]
  - MALAISE [None]
